FAERS Safety Report 14153197 (Version 2)
Quarter: 2017Q4

REPORT INFORMATION
  Report Type: Report from Study
  Country: BR (occurrence: BR)
  Receive Date: 20171102
  Receipt Date: 20171207
  Transmission Date: 20180321
  Serious: Yes (Other)
  Sender: FDA-Public Use
  Company Number: BR-AMGEN-BRANI2017162792

PATIENT
  Sex: Female
  Weight: 30 kg

DRUGS (2)
  1. BLINATUMOMAB [Suspect]
     Active Substance: BLINATUMOMAB
     Dosage: 15 MUG/M2, QD FOR SUBSEQUENT DAYS
     Route: 042
     Dates: end: 20171025
  2. BLINATUMOMAB [Suspect]
     Active Substance: BLINATUMOMAB
     Indication: B PRECURSOR TYPE ACUTE LEUKAEMIA
     Dosage: 5 MUG/M2, QD FOR DAYS 1-7
     Route: 042
     Dates: start: 20170912

REACTIONS (1)
  - Acute lymphocytic leukaemia refractory [Not Recovered/Not Resolved]

NARRATIVE: CASE EVENT DATE: 2017
